FAERS Safety Report 17500308 (Version 2)
Quarter: 2020Q1

REPORT INFORMATION
  Report Type: Report from Study
  Country: None (occurrence: DE)
  Receive Date: 20200305
  Receipt Date: 20200310
  Transmission Date: 20200409
  Serious: Yes (Hospitalization)
  Sender: FDA-Public Use
  Company Number: DE-ABBVIE-20K-062-3300206-00

PATIENT
  Age: 75 Year
  Sex: Female

DRUGS (1)
  1. DUODOPA [Suspect]
     Active Substance: CARBIDOPA\LEVODOPA
     Indication: PARKINSON^S DISEASE
     Dosage: MD: 6.5 ML; CRD: 4.5 ML/H; ED: 5 ML?PATIENT WAS STILL IN ADJUSTMENT PHASE.
     Route: 050
     Dates: start: 20200220

REACTIONS (4)
  - Hypotonia [Recovering/Resolving]
  - On and off phenomenon [Recovering/Resolving]
  - Dysphagia [Recovering/Resolving]
  - Dyskinesia [Recovering/Resolving]

NARRATIVE: CASE EVENT DATE: 20200224
